FAERS Safety Report 5079144-X (Version None)
Quarter: 2006Q3

REPORT INFORMATION
  Report Type: 
  Country: None (occurrence: None)
  Receive Date: 20060814
  Receipt Date: 20051006
  Transmission Date: 20061208
  Serious: Yes (Life-Threatening, Hospitalization)
  Sender: FDA-Public Use
  Company Number: NLWYE035707OCT05

PATIENT
  Sex: Male
  Weight: 81 kg

DRUGS (1)
  1. ENBREL [Suspect]
     Indication: PSORIASIS
     Route: 058
     Dates: start: 20050317, end: 20050901

REACTIONS (6)
  - ARRHYTHMIA [None]
  - HEART RATE DECREASED [None]
  - HEART RATE INCREASED [None]
  - MYOCARDIAL INFARCTION [None]
  - PERICARDIAL HAEMORRHAGE [None]
  - PROCEDURAL COMPLICATION [None]
